FAERS Safety Report 11567228 (Version 3)
Quarter: 2015Q4

REPORT INFORMATION
  Report Type: Spontaneous
  Country: US (occurrence: US)
  Receive Date: 20150916
  Receipt Date: 20151104
  Transmission Date: 20160304
  Serious: No
  Sender: FDA-Public Use
  Company Number: US-ELI_LILLY_AND_COMPANY-US200907002310

PATIENT
  Age: 78 Year
  Sex: Female

DRUGS (1)
  1. FORTEO [Suspect]
     Active Substance: TERIPARATIDE
     Dosage: UNK
     Dates: start: 200904

REACTIONS (7)
  - Headache [Recovered/Resolved]
  - Body height decreased [Unknown]
  - Weight decreased [Unknown]
  - Muscle spasms [Unknown]
  - Influenza [Unknown]
  - Gastrointestinal viral infection [Unknown]
  - Neck pain [Recovered/Resolved]

NARRATIVE: CASE EVENT DATE: 2009
